FAERS Safety Report 23074353 (Version 1)
Quarter: 2023Q4

REPORT INFORMATION
  Report Type: Other
  Country: None (occurrence: US)
  Receive Date: 20231017
  Receipt Date: 20231017
  Transmission Date: 20240110
  Serious: Yes (Life-Threatening, Hospitalization, Other)
  Sender: FDA-Public Use
  Company Number: US-Eywa Pharma Inc.-2147171

PATIENT
  Age: 84 Year
  Sex: Female

DRUGS (1)
  1. BACLOFEN [Suspect]
     Active Substance: BACLOFEN
     Indication: Neck pain
     Route: 065

REACTIONS (4)
  - Toxicity to various agents [Recovering/Resolving]
  - Respiratory acidosis [Recovered/Resolved]
  - Encephalopathy [Recovering/Resolving]
  - Depressed level of consciousness [Recovering/Resolving]
